FAERS Safety Report 8486655-3 (Version None)
Quarter: 2012Q3

REPORT INFORMATION
  Report Type: 
  Country: None (occurrence: None)
  Receive Date: 20120703
  Receipt Date: 20120618
  Transmission Date: 20120928
  Serious: Yes (Disabling, Other)
  Sender: FDA-Public Use
  Company Number: CHPA2012US013292

PATIENT
  Sex: Female

DRUGS (2)
  1. BENEFIBER UNKNOWN [Suspect]
     Indication: CONSTIPATION
     Dosage: UNK, UNK
  2. EXCEDRIN (MIGRAINE) [Suspect]
     Indication: MIGRAINE
     Dosage: 2-4 DF, 3-4 TIMES A WEEK
     Route: 048
     Dates: start: 20020101

REACTIONS (7)
  - GLAUCOMA [None]
  - BLINDNESS UNILATERAL [None]
  - CATARACT [None]
  - REBOUND EFFECT [None]
  - UTERINE PROLAPSE [None]
  - HEADACHE [None]
  - OPTIC NERVE INJURY [None]
